FAERS Safety Report 13791758 (Version 1)
Quarter: 2017Q3

REPORT INFORMATION
  Report Type: Report from Study
  Country: US (occurrence: US)
  Receive Date: 20170725
  Receipt Date: 20170725
  Transmission Date: 20171127
  Serious: Yes (Other)
  Sender: FDA-Public Use
  Company Number: US-ACTELION-A-US2016-140125

PATIENT
  Age: 58 Year
  Sex: Female
  Weight: 87.75 kg

DRUGS (4)
  1. TRACLEER [Suspect]
     Active Substance: BOSENTAN
     Indication: PULMONARY ARTERIAL HYPERTENSION
     Dosage: 125 MG, BID
     Route: 048
     Dates: start: 20150504
  2. TYVASO [Concomitant]
     Active Substance: TREPROSTINIL
  3. ADCIRCA [Concomitant]
     Active Substance: TADALAFIL
  4. XARELTO [Concomitant]
     Active Substance: RIVAROXABAN

REACTIONS (10)
  - Oxygen saturation decreased [Unknown]
  - Loss of consciousness [Unknown]
  - Tremor [Unknown]
  - Seizure [Unknown]
  - Heat stroke [Unknown]
  - Fall [Unknown]
  - Sciatica [Unknown]
  - Intervertebral disc protrusion [Unknown]
  - Dehydration [Unknown]
  - Head injury [Unknown]
